FAERS Safety Report 18701828 (Version 1)
Quarter: 2021Q1

REPORT INFORMATION
  Report Type: Spontaneous
  Country: US (occurrence: US)
  Receive Date: 20210105
  Receipt Date: 20210105
  Transmission Date: 20210419
  Serious: Yes (Death)
  Sender: FDA-Public Use
  Company Number: None

PATIENT
  Age: 12 Year
  Sex: Male
  Weight: 33.3 kg

DRUGS (7)
  1. METHYLPHENIDATE. [Concomitant]
     Active Substance: METHYLPHENIDATE
  2. OMEGA 3?BARLEANS [Concomitant]
  3. MONTELUKAST [Suspect]
     Active Substance: MONTELUKAST SODIUM
     Indication: SEASONAL ALLERGY
     Route: 048
     Dates: start: 20180519, end: 20181114
  4. CYPROHEPTADINE. [Concomitant]
     Active Substance: CYPROHEPTADINE
  5. TOTAL OMEGA SWIRL?ORANGE CREAM [Concomitant]
  6. FLUTICASONE PROPIONATE. [Concomitant]
     Active Substance: FLUTICASONE PROPIONATE
  7. MULTIVITAMIN?FLINTSTONES [Concomitant]

REACTIONS (4)
  - Crying [None]
  - Completed suicide [None]
  - Irritability [None]
  - Sleep disorder [None]

NARRATIVE: CASE EVENT DATE: 20181114
